FAERS Safety Report 16014910 (Version 1)
Quarter: 2019Q1

REPORT INFORMATION
  Report Type: Spontaneous
  Country: US (occurrence: US)
  Receive Date: 20190227
  Receipt Date: 20190227
  Transmission Date: 20190418
  Serious: No
  Sender: FDA-Public Use
  Company Number: US-ASTRAZENECA-2019SE19152

PATIENT

DRUGS (1)
  1. FARXIGA [Suspect]
     Active Substance: DAPAGLIFLOZIN PROPANEDIOL
     Route: 048

REACTIONS (6)
  - Muscle spasms [Unknown]
  - Pain [Unknown]
  - Dry mouth [Unknown]
  - Fungal infection [Unknown]
  - Oral mucosal blistering [Unknown]
  - Adverse drug reaction [Unknown]
